FAERS Safety Report 19430646 (Version 3)
Quarter: 2025Q4

REPORT INFORMATION
  Report Type: Spontaneous
  Country: US (occurrence: US)
  Receive Date: 20210618
  Receipt Date: 20251104
  Transmission Date: 20260118
  Serious: No
  Sender: ROCHE
  Company Number: US-ROCHE-2764844

PATIENT
  Sex: Female

DRUGS (1)
  1. ACTEMRA [Suspect]
     Active Substance: TOCILIZUMAB
     Indication: Giant cell arteritis
     Dosage: STRENGTH: 162 MG/0.9 ML, DOSE: 1 PEN
     Route: 058
     Dates: start: 20200728

REACTIONS (9)
  - Blood pressure increased [Unknown]
  - Headache [Unknown]
  - Vascular pain [Unknown]
  - Vasodilatation [Unknown]
  - Insomnia [Unknown]
  - Depression [Unknown]
  - Asthenia [Unknown]
  - Palpitations [Unknown]
  - Fatigue [Unknown]
